FAERS Safety Report 4774688-X (Version None)
Quarter: 2005Q3

REPORT INFORMATION
  Report Type: 
  Country: None (occurrence: None)
  Receive Date: 20050921
  Receipt Date: 20050916
  Transmission Date: 20060218
  Serious: Yes (Hospitalization)
  Sender: FDA-Public Use
  Company Number: PHNU2005DE03182

PATIENT
  Sex: Male

DRUGS (3)
  1. ESIDRIX [Suspect]
     Indication: OSTEOPOROSIS
     Dates: start: 19990101
  2. CALCIUM GLUCONATE [Concomitant]
     Indication: OSTEOPOROSIS
     Dates: start: 19990101
  3. FOSAMAX [Concomitant]
     Indication: OSTEOPOROSIS
     Dates: start: 19990101

REACTIONS (1)
  - SYNCOPE [None]
